FAERS Safety Report 7505839-1 (Version None)
Quarter: 2011Q2

REPORT INFORMATION
  Report Type: 
  Country: None (occurrence: None)
  Receive Date: 20110526
  Receipt Date: 20110516
  Transmission Date: 20111010
  Serious: Yes (Hospitalization)
  Sender: FDA-Public Use
  Company Number: NL-ELI_LILLY_AND_COMPANY-NL201103002786

PATIENT
  Sex: Female
  Weight: 48 kg

DRUGS (10)
  1. ISOSORBIDE DINITRATE [Concomitant]
     Indication: ANGINA PECTORIS
     Dosage: 5 MG, AS NEEDED
     Route: 060
  2. ISOSORBIDE MONONITRATE [Concomitant]
     Indication: ANGINA PECTORIS
     Dosage: 30 MG, DAILY (1/D)
     Route: 048
  3. ACETYLSALICYLIC ACID SRT [Concomitant]
     Indication: ANGINA PECTORIS
     Dosage: 80 MG, DAILY (1/D)
     Route: 048
  4. AMLODIPINE [Concomitant]
     Indication: HYPERTENSION
     Dosage: 5 MG, DAILY (1/D)
     Route: 048
  5. FORTEO [Suspect]
     Dosage: 20 UG, DAILY (1/D)
     Route: 058
     Dates: start: 20100325, end: 20110218
  6. METOPROLOL TARTRATE [Concomitant]
     Indication: ANGINA PECTORIS
     Dosage: 100 MG, DAILY (1/D)
     Route: 048
  7. PANTOPRAZOL [Concomitant]
     Indication: PROPHYLAXIS AGAINST GASTROINTESTINAL ULCER
     Dosage: 20 MG, DAILY (1/D)
     Route: 048
  8. PREDNISOLON                        /00016201/ [Concomitant]
     Indication: INFLAMMATION
     Dosage: 30 MG, UNK
     Route: 048
  9. PRAVASTATIN [Concomitant]
     Indication: BLOOD CHOLESTEROL
     Dosage: 40 MG, DAILY (1/D)
     Route: 048
  10. SALMETEROL/FLUTICASONPROPIONAAT [Concomitant]
     Indication: ASTHMA
     Dosage: 1 PUFF TWICE DAILY
     Route: 055

REACTIONS (3)
  - DIZZINESS [None]
  - CHEST PAIN [None]
  - DYSPNOEA [None]
